FAERS Safety Report 5354652-2 (Version None)
Quarter: 2007Q2

REPORT INFORMATION
  Report Type: 
  Country: None (occurrence: None)
  Receive Date: 20070612
  Receipt Date: 20070531
  Transmission Date: 20071010
  Serious: Yes (Hospitalization)
  Sender: FDA-Public Use
  Company Number: DE-AMGEN-UK227187

PATIENT
  Sex: Male

DRUGS (2)
  1. NEUPOGEN [Suspect]
     Indication: CHEMOTHERAPY
     Route: 065
  2. GRANOCYTE [Concomitant]

REACTIONS (1)
  - INTRACARDIAC THROMBUS [None]
